FAERS Safety Report 17214733 (Version 1)
Quarter: 2019Q4

REPORT INFORMATION
  Report Type: Report from Study
  Country: FR (occurrence: FR)
  Receive Date: 20191230
  Receipt Date: 20191230
  Transmission Date: 20200122
  Serious: Yes (Hospitalization, Other)
  Sender: FDA-Public Use
  Company Number: FR-PFIZER INC-2017402512

PATIENT
  Age: 69 Year
  Sex: Male
  Weight: 112 kg

DRUGS (18)
  1. BOSULIF [Suspect]
     Active Substance: BOSUTINIB MONOHYDRATE
     Dosage: 100 MG, 2X/DAY
     Dates: start: 20161006, end: 20180109
  2. VALSARTAN. [Concomitant]
     Active Substance: VALSARTAN
     Indication: HYPERTENSION
     Dosage: 40 MG, 1X/DAY
     Route: 048
     Dates: start: 20171115
  3. GLIVEC [Concomitant]
     Active Substance: IMATINIB MESYLATE
     Indication: CHRONIC MYELOID LEUKAEMIA
     Dosage: UNK
     Route: 048
     Dates: start: 20180808
  4. ALLOPURINOL. [Concomitant]
     Active Substance: ALLOPURINOL
     Indication: GOUT
     Dosage: 300 MG, 1X/DAY
     Route: 048
     Dates: start: 1994
  5. MOPRAL /00661201/ [Concomitant]
     Active Substance: OMEPRAZOLE SODIUM
     Dosage: 20 MG, 1X/DAY
  6. ATORVASTATIN [Concomitant]
     Active Substance: ATORVASTATIN
     Dosage: 20 MG, 2X/DAY
  7. ASPIRINE [Suspect]
     Active Substance: ASPIRIN
     Indication: THROMBOSIS PROPHYLAXIS
     Dosage: 100 MG, 1X/DAY
     Route: 048
     Dates: start: 20170825
  8. BRILIQUE [Concomitant]
     Active Substance: TICAGRELOR
     Indication: THROMBOSIS PROPHYLAXIS
  9. FUROSEMIDE. [Concomitant]
     Active Substance: FUROSEMIDE
     Indication: PLEURAL EFFUSION
     Dosage: 20 MG, 1X/DAY
     Route: 048
     Dates: start: 20171115
  10. BISOPROLOL [Concomitant]
     Active Substance: BISOPROLOL
     Indication: HYPERTENSION
  11. BRILIQUE [Concomitant]
     Active Substance: TICAGRELOR
     Indication: INFARCTION
     Dosage: UNK
     Route: 048
     Dates: start: 20170825
  12. PARIET [Concomitant]
     Active Substance: RABEPRAZOLE SODIUM
     Dosage: 20 MG, 1X/DAY
  13. TICAGRELOR. [Concomitant]
     Active Substance: TICAGRELOR
     Dosage: 1 DF, 2X/DAY
  14. TAHOR [Concomitant]
     Active Substance: ATORVASTATIN CALCIUM
     Indication: HYPERTENSION
  15. AMLOR [Concomitant]
     Active Substance: AMLODIPINE BESYLATE
     Indication: HYPERTENSION
     Dosage: 10 MG, 1X/DAY
     Route: 048
     Dates: start: 20171115
  16. ESOMEPRAZOLE. [Concomitant]
     Active Substance: ESOMEPRAZOLE MAGNESIUM
     Indication: GASTROOESOPHAGEAL REFLUX DISEASE
     Dosage: UNK
     Route: 048
  17. BISOPROLOL [Concomitant]
     Active Substance: BISOPROLOL
     Indication: CARDIAC FAILURE
     Dosage: 1.25 MG, 1X/DAY
     Route: 048
     Dates: start: 20170825
  18. TAHOR [Concomitant]
     Active Substance: ATORVASTATIN CALCIUM
     Indication: BLOOD CHOLESTEROL
     Dosage: 80 MG, 1X/DAY
     Route: 048
     Dates: start: 20170825

REACTIONS (22)
  - Dyspnoea [Recovering/Resolving]
  - Cardiac failure [Recovered/Resolved]
  - Pruritus [Recovered/Resolved]
  - Product dose omission [Unknown]
  - Nephrolithiasis [Recovered/Resolved]
  - Haematuria [Recovered/Resolved]
  - Faecaloma [Recovered/Resolved]
  - Pleural effusion [Recovered/Resolved]
  - Cough [Recovering/Resolving]
  - Renal failure [Recovering/Resolving]
  - Diarrhoea [Recovered/Resolved]
  - Herpes zoster [Recovered/Resolved]
  - Infection [Recovered/Resolved]
  - Myocardial infarction [Recovering/Resolving]
  - Asthenia [Recovered/Resolved]
  - Dyspnoea [Recovered/Resolved]
  - Cough [Recovered/Resolved]
  - Arthralgia [Recovered/Resolved]
  - Pleural effusion [Recovering/Resolving]
  - Product dose omission [Unknown]
  - Bronchial disorder [Recovering/Resolving]
  - Insomnia [Recovered/Resolved]

NARRATIVE: CASE EVENT DATE: 201610
